FAERS Safety Report 8302232-9 (Version None)
Quarter: 2012Q2

REPORT INFORMATION
  Report Type: 
  Country: None (occurrence: None)
  Receive Date: 20120420
  Receipt Date: 20120411
  Transmission Date: 20120825
  Serious: Yes (Hospitalization)
  Sender: FDA-Public Use
  Company Number: US-ASTRAZENECA-2012SE24172

PATIENT
  Age: 57 Year
  Sex: Female
  Weight: 89.8 kg

DRUGS (15)
  1. VICTOZA [Concomitant]
     Indication: BLOOD GLUCOSE ABNORMAL
     Route: 065
  2. LISINOPRIL [Concomitant]
     Route: 048
  3. SEROQUEL XR [Suspect]
     Route: 048
  4. TOPROL-XL [Concomitant]
     Indication: HYPERTENSION
     Route: 048
  5. FUROSEMIDE [Concomitant]
     Indication: FLUID RETENTION
     Route: 048
  6. KLOR-CON [Concomitant]
     Indication: POLYURIA
     Route: 048
  7. SEROQUEL XR [Suspect]
     Indication: SCHIZOPHRENIA
     Route: 048
  8. SEROQUEL XR [Suspect]
     Indication: BIPOLAR DISORDER
     Route: 048
  9. SYNTHROID [Concomitant]
     Indication: THYROID DISORDER
     Route: 048
  10. SEROQUEL XR [Suspect]
     Route: 048
  11. EFFEXOR XR [Concomitant]
     Route: 048
  12. LOVAZA [Concomitant]
     Indication: BLOOD CHOLESTEROL INCREASED
  13. PROTONIX [Concomitant]
     Indication: GASTRIC DISORDER
     Route: 048
  14. MECLIZINE [Concomitant]
     Indication: INNER EAR DISORDER
     Route: 048
  15. INSULIN [Concomitant]
     Indication: BLOOD GLUCOSE INCREASED
     Dosage: 100 MG IN MORNING AND 86 MG AT NIGHT
     Route: 065

REACTIONS (3)
  - INTENTIONAL DRUG MISUSE [None]
  - BLOOD GLUCOSE FLUCTUATION [None]
  - HALLUCINATION [None]
